FAERS Safety Report 5348664-2 (Version None)
Quarter: 2007Q2

REPORT INFORMATION
  Report Type: 
  Country: None (occurrence: None)
  Receive Date: 20070605
  Receipt Date: 20070523
  Transmission Date: 20071010
  Serious: Yes (Death)
  Sender: FDA-Public Use
  Company Number: 2007EN000147

PATIENT
  Age: 35 Year
  Sex: Female
  Weight: 60.782 kg

DRUGS (13)
  1. OPANA ER [Suspect]
     Indication: PAIN
     Dosage: BID
     Dates: start: 20070401, end: 20070401
  2. OPANA ER [Suspect]
     Indication: PAIN
     Dosage: BID
     Dates: start: 20070509
  3. OPANA [Suspect]
     Indication: BREAKTHROUGH PAIN
     Dosage: 5 MG; PRN
     Dates: start: 20070401, end: 20070401
  4. OPANA [Suspect]
     Indication: BREAKTHROUGH PAIN
     Dosage: 5 MG; PRN
     Dates: start: 20070509
  5. DURAGESIC                    /00174601/ [Concomitant]
  6. VICODIN ES [Concomitant]
  7. AMITRIPTYLINE HCL [Concomitant]
  8. ZOLOFT [Concomitant]
  9. PROVIGIL [Concomitant]
  10. LEVOXYL [Concomitant]
  11. LUNESTA [Concomitant]
  12. KLONOPIN [Concomitant]
  13. ARAVA [Concomitant]

REACTIONS (1)
  - DEATH [None]
